FAERS Safety Report 11186754 (Version 1)
Quarter: 2015Q2

REPORT INFORMATION
  Report Type: Spontaneous
  Country: RO (occurrence: RO)
  Receive Date: 20150613
  Receipt Date: 20150613
  Transmission Date: 20150821
  Serious: Yes (Life-Threatening, Hospitalization, Other)
  Sender: FDA-Public Use
  Company Number: RO-ABBVIE-15K-135-1335022-00

PATIENT
  Age: 60 Year
  Sex: Female
  Weight: 55 kg

DRUGS (1)
  1. HUMIRA [Suspect]
     Active Substance: ADALIMUMAB
     Indication: RHEUMATOID ARTHRITIS
     Route: 058
     Dates: start: 20120711, end: 20141212

REACTIONS (9)
  - Abscess [Recovering/Resolving]
  - Fatigue [Unknown]
  - Cellulitis [Unknown]
  - General physical health deterioration [Unknown]
  - Staphylococcal sepsis [Recovering/Resolving]
  - Lipogranuloma [Unknown]
  - Cellulitis [Unknown]
  - Arthralgia [Unknown]
  - Interstitial lung disease [Recovering/Resolving]

NARRATIVE: CASE EVENT DATE: 2014
